FAERS Safety Report 15598235 (Version 1)
Quarter: 2018Q4

REPORT INFORMATION
  Report Type: Spontaneous
  Country: US (occurrence: US)
  Receive Date: 20181108
  Receipt Date: 20181108
  Transmission Date: 20190205
  Serious: Yes (Disabling, Other)
  Sender: FDA-Public Use
  Company Number: None

PATIENT
  Age: 61 Year
  Sex: Male
  Weight: 92.25 kg

DRUGS (14)
  1. LOSARTAN. [Concomitant]
     Active Substance: LOSARTAN
  2. FUROSEMIDE. [Concomitant]
     Active Substance: FUROSEMIDE
  3. LANTUS [Concomitant]
     Active Substance: INSULIN GLARGINE
  4. VALSARTAN. [Suspect]
     Active Substance: VALSARTAN
     Indication: HYPOTENSION
     Dosage: ?          QUANTITY:1 TABLET(S);?
     Route: 048
     Dates: start: 20080901, end: 20180715
  5. CALCITRIOL. [Concomitant]
     Active Substance: CALCITRIOL
  6. RENAL MULTIVITAMIN [Concomitant]
  7. EPLERENONE. [Concomitant]
     Active Substance: EPLERENONE
  8. LABETALOL [Concomitant]
     Active Substance: LABETALOL\LABETALOL HYDROCHLORIDE
  9. FLUTICASONE. [Concomitant]
     Active Substance: FLUTICASONE
  10. ADK [Concomitant]
  11. ASPIRIN. [Concomitant]
     Active Substance: ASPIRIN
  12. HYDRALAZINE [Concomitant]
     Active Substance: HYDRALAZINE HYDROCHLORIDE
  13. PANTOPRAZOLE [Concomitant]
     Active Substance: PANTOPRAZOLE
  14. GLARGINE INSULIN [Concomitant]
     Active Substance: INSULIN GLARGINE

REACTIONS (5)
  - Renal cancer [None]
  - Shock [None]
  - Neuropathy peripheral [None]
  - Hepatic steatosis [None]
  - Dialysis [None]

NARRATIVE: CASE EVENT DATE: 20150612
